FAERS Safety Report 11128322 (Version 5)
Quarter: 2015Q4

REPORT INFORMATION
  Report Type: Report from Study
  Country: AU (occurrence: AU)
  Receive Date: 20150521
  Receipt Date: 20151015
  Transmission Date: 20160304
  Serious: Yes (Other)
  Sender: FDA-Public Use
  Company Number: AU-SA-2015SA052684

PATIENT
  Age: 47 Year
  Sex: Female

DRUGS (17)
  1. CALCITRIOL. [Concomitant]
     Active Substance: CALCITRIOL
  2. VITAMIN B [Concomitant]
     Active Substance: VITAMIN B
  3. PANTOPRAZOLE [Concomitant]
     Active Substance: PANTOPRAZOLE SODIUM
  4. AUBAGIO [Suspect]
     Active Substance: TERIFLUNOMIDE
     Route: 048
     Dates: start: 20150410
  5. COLOXYL [Concomitant]
     Active Substance: DOCUSATE SODIUM
  6. DULOXETINE. [Concomitant]
     Active Substance: DULOXETINE
  7. CICLESONIDE [Concomitant]
     Active Substance: CICLESONIDE
     Indication: SEASONAL ALLERGY
  8. BACLOFEN. [Concomitant]
     Active Substance: BACLOFEN
     Indication: PAIN
  9. LYRICA [Concomitant]
     Active Substance: PREGABALIN
  10. SYMBICORT [Concomitant]
     Active Substance: BUDESONIDE\FORMOTEROL FUMARATE DIHYDRATE
  11. SOMATROPIN [Concomitant]
     Active Substance: SOMATROPIN
  12. CALTRATE [Concomitant]
     Active Substance: CALCIUM CARBONATE
  13. VITAMIN D [Concomitant]
     Active Substance: CHOLECALCIFEROL
  14. IRON [Concomitant]
     Active Substance: IRON
     Indication: MINERAL SUPPLEMENTATION
  15. ONDANSETRON [Concomitant]
     Active Substance: ONDANSETRON
  16. PANADOL [Concomitant]
     Active Substance: ACETAMINOPHEN
  17. THYROXIN [Concomitant]
     Active Substance: LEVOTHYROXINE

REACTIONS (20)
  - Anaemia [Unknown]
  - Lymphadenopathy [Not Recovered/Not Resolved]
  - Fatigue [Not Recovered/Not Resolved]
  - Migraine [Unknown]
  - Cough [Recovered/Resolved]
  - Hypoaesthesia [Not Recovered/Not Resolved]
  - Biopsy uterus [Unknown]
  - Erythema [Not Recovered/Not Resolved]
  - Urinary tract infection [Recovering/Resolving]
  - Pruritus [Unknown]
  - Postmenopausal haemorrhage [Unknown]
  - Hormone level abnormal [Unknown]
  - Nausea [Recovering/Resolving]
  - Oropharyngeal pain [Unknown]
  - Alopecia [Not Recovered/Not Resolved]
  - Neuralgia [Unknown]
  - Endometrial hyperplasia [Unknown]
  - Diarrhoea [Recovering/Resolving]
  - Alopecia [Unknown]
  - Unevaluable event [Unknown]

NARRATIVE: CASE EVENT DATE: 2015
